FAERS Safety Report 4805978-X (Version None)
Quarter: 2005Q4

REPORT INFORMATION
  Report Type: 
  Country: None (occurrence: None)
  Receive Date: 20051019
  Receipt Date: 20051007
  Transmission Date: 20060501
  Serious: Yes (Death, Other)
  Sender: FDA-Public Use
  Company Number: GBR-2005-0001919

PATIENT
  Age: 18 Year
  Sex: Male

DRUGS (4)
  1. MORPHINE [Suspect]
  2. HEROIN (DIAMORPHINE) [Suspect]
  3. DOXEPIN HCL [Suspect]
     Indication: DEPRESSION
  4. DIAZEPAM [Suspect]

REACTIONS (3)
  - CIRCULATORY COLLAPSE [None]
  - DRUG ABUSER [None]
  - INTENTIONAL DRUG MISUSE [None]
